FAERS Safety Report 13351260 (Version 1)
Quarter: 2017Q1

REPORT INFORMATION
  Report Type: Other
  Country: US (occurrence: US)
  Receive Date: 20170320
  Receipt Date: 20170320
  Transmission Date: 20170429
  Serious: No
  Sender: FDA-Public Use
  Company Number: US-TRIS PHARMA, INC.-1064430

PATIENT
  Age: 68 Year
  Sex: Female
  Weight: 51.36 kg

DRUGS (4)
  1. BENZONATATE. [Concomitant]
     Active Substance: BENZONATATE
  2. ROBITUSSIN DM MAX COUGH CONGESTION [Concomitant]
     Active Substance: DEXTROMETHORPHAN HYDROBROMIDE\GUAIFENESIN
     Dates: start: 20161026
  3. ACETAMINOPHEN AND CODEINE [Concomitant]
     Active Substance: ACETAMINOPHEN\CODEINE PHOSPHATE
  4. DEXTROMETHORPHAN POLISTIREX ER OS [Suspect]
     Active Substance: DEXTROMETHORPHAN HYDROBROMIDE
     Indication: VIRAL INFECTION
     Route: 048
     Dates: start: 20161030

REACTIONS (4)
  - Headache [None]
  - Somnolence [None]
  - Drug ineffective [None]
  - Dry throat [None]

NARRATIVE: CASE EVENT DATE: 20161030
